FAERS Safety Report 17718251 (Version 1)
Quarter: 2020Q2

REPORT INFORMATION
  Report Type: Spontaneous
  Country: US (occurrence: US)
  Receive Date: 20200428
  Receipt Date: 20200428
  Transmission Date: 20200714
  Serious: Yes (Hospitalization)
  Sender: FDA-Public Use
  Company Number: None

PATIENT
  Age: 73 Year
  Sex: Male
  Weight: 105 kg

DRUGS (2)
  1. BEVACIZUMAB (BEVACIZUMAB 25MG/ML INJ,16ML [Suspect]
     Active Substance: BEVACIZUMAB
     Indication: COLON CANCER
     Dosage: ?          OTHER STRENGTH:25MG/ML, 16ML;OTHER FREQUENCY:UD;?
     Route: 042
     Dates: start: 20190822
  2. CAPECITABINE (CAPECITABINE 500MG TAB) [Suspect]
     Active Substance: CAPECITABINE
     Indication: COLON CANCER
     Route: 048
     Dates: start: 20171214, end: 20200129

REACTIONS (1)
  - Cardiomyopathy [None]

NARRATIVE: CASE EVENT DATE: 20200129
